FAERS Safety Report 13362134 (Version 1)
Quarter: 2017Q1

REPORT INFORMATION
  Report Type: Spontaneous
  Country: SE (occurrence: SE)
  Receive Date: 20170323
  Receipt Date: 20170323
  Transmission Date: 20170429
  Serious: Yes (Other)
  Sender: FDA-Public Use
  Company Number: SE-GLAXOSMITHKLINE-SE2017039679

PATIENT
  Age: 49 Year
  Sex: Female

DRUGS (5)
  1. VOXRA [Suspect]
     Active Substance: BUPROPION HYDROCHLORIDE
     Indication: APATHY
  2. VOXRA [Suspect]
     Active Substance: BUPROPION HYDROCHLORIDE
     Indication: FATIGUE
     Dosage: 150 MG, WE,150 MG ONE WEEK, INCREASE TO 300 MG THE WEEK AFTER AFTER^
     Route: 065
     Dates: start: 201405
  3. PROPAVAN [Concomitant]
     Active Substance: PROPIOMAZINE
     Dosage: UNK
     Route: 065
  4. STILNOCT [Concomitant]
     Active Substance: ZOLPIDEM TARTRATE
     Dosage: UNK
     Route: 065
  5. VOXRA [Suspect]
     Active Substance: BUPROPION HYDROCHLORIDE
     Indication: COGNITIVE DISORDER
     Dosage: 300 MG, WE,150 MG ONE WEEK, INCREASE TO 300 MG THE WEEK AFTER AFTER^
     Route: 065
     Dates: end: 201405

REACTIONS (6)
  - Hyperthyroidism [Unknown]
  - Dyspnoea [Unknown]
  - Skin haemorrhage [Unknown]
  - Balance disorder [Unknown]
  - Goitre [Unknown]
  - Urinary incontinence [Unknown]

NARRATIVE: CASE EVENT DATE: 201405
